FAERS Safety Report 17806014 (Version 1)
Quarter: 2020Q2

REPORT INFORMATION
  Report Type: Report from Study
  Country: AU (occurrence: AU)
  Receive Date: 20200520
  Receipt Date: 20200520
  Transmission Date: 20200714
  Serious: Yes (Other)
  Sender: FDA-Public Use
  Company Number: AU-ROCHE-2602490

PATIENT
  Sex: Female

DRUGS (1)
  1. OCREVUS [Suspect]
     Active Substance: OCRELIZUMAB
     Indication: RELAPSING-REMITTING MULTIPLE SCLEROSIS
     Dosage: CEASED
     Route: 041
     Dates: start: 20180302, end: 20200128

REACTIONS (4)
  - Seronegative arthritis [Unknown]
  - Tenosynovitis [Unknown]
  - Psoriatic arthropathy [Unknown]
  - Nail discolouration [Unknown]

NARRATIVE: CASE EVENT DATE: 2019
